FAERS Safety Report 4590324-X (Version None)
Quarter: 2005Q1

REPORT INFORMATION
  Report Type: 
  Country: None (occurrence: None)
  Receive Date: 20050224
  Receipt Date: 20041012
  Transmission Date: 20050727
  Serious: Yes (Other)
  Sender: FDA-Public Use
  Company Number: FRWYE104912OCT04

PATIENT
  Sex: Female

DRUGS (6)
  1. ENBREL [Suspect]
     Indication: RHEUMATOID ARTHRITIS
     Route: 058
     Dates: start: 20040201, end: 20041021
  2. HYDROQUINONE [Concomitant]
     Dosage: UNKNOWN
  3. FLUDEX [Concomitant]
     Dosage: UNKNOWN
  4. IRBESARTAN [Concomitant]
     Dosage: UNKNOWN
  5. FUROSEMIDE [Concomitant]
  6. RAMIPRIL [Concomitant]

REACTIONS (2)
  - CONDITION AGGRAVATED [None]
  - CONGESTIVE CARDIOMYOPATHY [None]
